FAERS Safety Report 25483531 (Version 2)
Quarter: 2025Q3

REPORT INFORMATION
  Report Type: Spontaneous
  Country: US (occurrence: US)
  Receive Date: 20250626
  Receipt Date: 20250709
  Transmission Date: 20251020
  Serious: Yes (Other)
  Sender: BAYER HEALTHCARE PHARMACEUTICALS INC.
  Company Number: US-BAYER-2025A082476

PATIENT
  Age: 67 Year
  Sex: Female

DRUGS (3)
  1. ADEMPAS [Suspect]
     Active Substance: RIOCIGUAT
     Indication: Product used for unknown indication
     Dates: start: 20250501, end: 202505
  2. OPSUMIT [Concomitant]
     Active Substance: MACITENTAN
  3. SILDENAFIL [Concomitant]
     Active Substance: SILDENAFIL

REACTIONS (3)
  - Loss of consciousness [None]
  - Dyspnoea [None]
  - Drug intolerance [None]

NARRATIVE: CASE EVENT DATE: 20250501
